FAERS Safety Report 5930220-6 (Version None)
Quarter: 2008Q4

REPORT INFORMATION
  Report Type: 
  Country: None (occurrence: None)
  Receive Date: 20081009
  Receipt Date: 20080408
  Transmission Date: 20090506
  Serious: Yes (Other)
  Sender: FDA-Public Use
  Company Number: PHEH2008US02962

PATIENT
  Age: 64 Year
  Sex: Male
  Weight: 72.1 kg

DRUGS (5)
  1. ZOMETA [Suspect]
     Indication: METASTASES TO BONE
     Dosage: 4MG QMO, INTRAVENOUS
     Route: 042
     Dates: start: 20070420, end: 20080206
  2. ACIPHEX [Concomitant]
  3. MAXZIDE [Concomitant]
  4. EYE DROPS (TETRYZOLINE HYDROCHLORIDE) [Concomitant]
  5. LIPOFLAVONOID (ASCORBIC ACID, BIOFLAVONOIDS, CHOLINE BITARTRATE, DL-ME [Concomitant]

REACTIONS (8)
  - BACK PAIN [None]
  - BONE DISORDER [None]
  - HALO VISION [None]
  - HIGH FREQUENCY ABLATION [None]
  - METASTASIS [None]
  - OSTEOSCLEROSIS [None]
  - SOFT TISSUE DISORDER [None]
  - SYRINGOMYELIA [None]
